APPROVED DRUG PRODUCT: PRAVASTATIN SODIUM
Active Ingredient: PRAVASTATIN SODIUM
Strength: 10MG
Dosage Form/Route: TABLET;ORAL
Application: A076445 | Product #001
Applicant: RANBAXY LABORATORIES LTD
Approved: Apr 23, 2007 | RLD: No | RS: No | Type: DISCN